FAERS Safety Report 6115081-7 (Version None)
Quarter: 2009Q1

REPORT INFORMATION
  Report Type: 
  Country: None (occurrence: None)
  Receive Date: 20090313
  Receipt Date: 20090309
  Transmission Date: 20090719
  Serious: Yes (Hospitalization)
  Sender: FDA-Public Use
  Company Number: B0564002A

PATIENT
  Age: 93 Year
  Sex: Male

DRUGS (1)
  1. AUGMENTIN '125' [Suspect]
     Indication: BRONCHOPNEUMOPATHY
     Dosage: 3G PER DAY
     Route: 048
     Dates: start: 20080731, end: 20080808

REACTIONS (2)
  - CLOSTRIDIUM DIFFICILE COLITIS [None]
  - PYREXIA [None]
